FAERS Safety Report 13997961 (Version 1)
Quarter: 2017Q3

REPORT INFORMATION
  Report Type: Spontaneous
  Country: CO (occurrence: CO)
  Receive Date: 20170921
  Receipt Date: 20170921
  Transmission Date: 20171128
  Serious: Yes (Life-Threatening, Hospitalization)
  Sender: FDA-Public Use
  Company Number: CO-MYLANLABS-2017M1058789

PATIENT
  Sex: Male

DRUGS (4)
  1. INDOMETACIN [Suspect]
     Active Substance: INDOMETHACIN
     Indication: PRODUCT USED FOR UNKNOWN INDICATION
     Route: 064
  2. INDOMETACIN [Suspect]
     Active Substance: INDOMETHACIN
     Route: 064
  3. PARACETAMOL [Suspect]
     Active Substance: ACETAMINOPHEN
     Indication: PAIN MANAGEMENT
     Route: 064
  4. DIPYRONE [Suspect]
     Active Substance: DIPYRONE
     Indication: PAIN MANAGEMENT
     Route: 064

REACTIONS (5)
  - Ductus arteriosus premature closure [Recovered/Resolved]
  - Tricuspid valve incompetence [Unknown]
  - Right ventricular failure [Recovered/Resolved]
  - Foetal exposure during pregnancy [Recovered/Resolved]
  - Pulmonary hypertension [Recovered/Resolved]
